FAERS Safety Report 20035481 (Version 10)
Quarter: 2024Q4

REPORT INFORMATION
  Report Type: Spontaneous
  Country: US (occurrence: US)
  Receive Date: 20211104
  Receipt Date: 20241220
  Transmission Date: 20250114
  Serious: Yes (Other)
  Sender: PFIZER
  Company Number: US-PFIZER INC-202101440918

PATIENT
  Age: 69 Year
  Sex: Female

DRUGS (1)
  1. IBRANCE [Suspect]
     Active Substance: PALBOCICLIB
     Indication: Breast cancer female
     Dosage: TAKE BY MOUTH DAILY FOR 21 DAYS, THEN OFF 7 DAYS, THEN REPEAT.
     Route: 048

REACTIONS (6)
  - Full blood count decreased [Unknown]
  - Mental impairment [Unknown]
  - Immune system disorder [Unknown]
  - Memory impairment [Unknown]
  - Brain fog [Unknown]
  - Malaise [Unknown]
